FAERS Safety Report 6598161-1 (Version None)
Quarter: 2010Q1

REPORT INFORMATION
  Report Type: 
  Country: None (occurrence: None)
  Receive Date: 20100224
  Receipt Date: 20050107
  Transmission Date: 20100710
  Serious: No
  Sender: FDA-Public Use
  Company Number: US-ALLERGAN-200500426

PATIENT
  Sex: Female

DRUGS (2)
  1. BOTOX [Suspect]
     Indication: MUSCLE SPASTICITY
     Dosage: 600UNITS, PRN
     Route: 030
     Dates: start: 20050106
  2. TEGRETOL [Suspect]
     Indication: CONVULSION

REACTIONS (2)
  - LIP SWELLING [None]
  - SWOLLEN TONGUE [None]
